FAERS Safety Report 9559313 (Version 3)
Quarter: 2013Q4

REPORT INFORMATION
  Report Type: Report from Study
  Country: IN (occurrence: IN)
  Receive Date: 20130927
  Receipt Date: 20131104
  Transmission Date: 20140711
  Serious: Yes (Death, Other)
  Sender: FDA-Public Use
  Company Number: PHHY2013IN064920

PATIENT
  Age: 53 Year
  Sex: Female

DRUGS (2)
  1. AFINITOR [Suspect]
     Indication: BREAST CANCER
     Dosage: 5 MG, UNK
     Route: 048
     Dates: start: 20130527, end: 20130616
  2. AROMASIN [Concomitant]
     Dosage: 25 MG, UNK
     Route: 048

REACTIONS (5)
  - Death [Fatal]
  - General physical health deterioration [Unknown]
  - Aphagia [Unknown]
  - Full blood count decreased [Unknown]
  - Oedema peripheral [Not Recovered/Not Resolved]
